FAERS Safety Report 8166984-3 (Version None)
Quarter: 2012Q1

REPORT INFORMATION
  Report Type: 
  Country: None (occurrence: None)
  Receive Date: 20120221
  Receipt Date: 20120206
  Transmission Date: 20120608
  Serious: Yes (Life-Threatening, Hospitalization, Other)
  Sender: FDA-Public Use
  Company Number: 09-AUR-10543

PATIENT
  Age: 49 Year
  Sex: Female
  Weight: 89 kg

DRUGS (11)
  1. ONDANSETRON [Suspect]
     Indication: PRODUCT USED FOR UNKNOWN INDICATION
     Dosage: (4 MG, 1 TOTAL), UNKNOWN
  2. MORPHINE [Concomitant]
  3. METHYLENE BLUE (METHYLTHIONINIUM CHLORIDE) [Suspect]
     Indication: PARATHYROIDECTOMY
     Dosage: UNKNOWN
  4. ENFLURANE [Concomitant]
  5. PAROXETINE HCL [Suspect]
     Indication: DEPRESSION
     Dosage: 30 MG (30 MG, 1 IN 1 D), UNKNOWN
  6. PROPOFOL [Concomitant]
  7. ATRACURIUM BESYLATE [Concomitant]
  8. INDOMETHACIN [Concomitant]
  9. NITROUS OXIDE W/ OXYGEN [Concomitant]
  10. DICLOFENAC SODIUM [Concomitant]
  11. OXYGEN (OXYGEN) [Concomitant]

REACTIONS (8)
  - PCO2 INCREASED [None]
  - DRUG INTERACTION [None]
  - UNRESPONSIVE TO STIMULI [None]
  - DRUG INEFFECTIVE [None]
  - BLOOD CREATINE PHOSPHOKINASE INCREASED [None]
  - OCULOGYRIC CRISIS [None]
  - ALKALOSIS [None]
  - SEROTONIN SYNDROME [None]
